FAERS Safety Report 8963021 (Version 1)
Quarter: 2012Q4

REPORT INFORMATION
  Report Type: 
  Country: BR (occurrence: BR)
  Receive Date: 20121213
  Receipt Date: 20121213
  Transmission Date: 20130627
  Serious: Yes (Death)
  Sender: FDA-Public Use
  Company Number: BR-PFIZER INC-2012314473

PATIENT
  Age: 70 Year
  Sex: Female

DRUGS (2)
  1. CITALOR [Suspect]
     Dosage: UNK
     Route: 048
  2. NORVASC [Suspect]
     Dosage: UNK
     Route: 048

REACTIONS (1)
  - Infarction [Fatal]
